FAERS Safety Report 18427551 (Version 2)
Quarter: 2020Q4

REPORT INFORMATION
  Report Type: Report from Study
  Country: US (occurrence: US)
  Receive Date: 20201026
  Receipt Date: 20201030
  Transmission Date: 20210114
  Serious: Yes (Hospitalization, Other)
  Sender: FDA-Public Use
  Company Number: US-PUMA BIOTECHNOLOGY, LTD.-2020US000383

PATIENT

DRUGS (8)
  1. NERLYNX [Suspect]
     Active Substance: NERATINIB
     Indication: MALIGNANT NEOPLASM OF UNKNOWN PRIMARY SITE
     Dosage: 120 MG (3 TABLETS), DAILY
     Route: 048
     Dates: start: 20191212, end: 2020
  2. IMODIUM [Concomitant]
     Active Substance: LOPERAMIDE HYDROCHLORIDE
     Indication: PROPHYLAXIS AGAINST DIARRHOEA
  3. NERLYNX [Suspect]
     Active Substance: NERATINIB
     Indication: HER2 POSITIVE BREAST CANCER
     Dosage: 240 MG (6 TABLETS), DAILY
     Route: 048
     Dates: start: 2020, end: 2020
  4. NERLYNX [Suspect]
     Active Substance: NERATINIB
     Dosage: 240 MG (6 TABLETS), DAILY
     Route: 048
     Dates: start: 2020, end: 2020
  5. NERLYNX [Suspect]
     Active Substance: NERATINIB
     Dosage: 160 MG (4 TABLETS), DAILY
     Route: 048
     Dates: start: 20200508
  6. ZOFRAN [Concomitant]
     Active Substance: ONDANSETRON HYDROCHLORIDE
     Indication: METASTASES TO MENINGES
  7. NERLYNX [Suspect]
     Active Substance: NERATINIB
     Indication: METASTASES TO MENINGES
     Dosage: 240 MG (6 TABLETS), DAILY
     Route: 048
     Dates: start: 20200308, end: 20200308
  8. NERLYNX [Suspect]
     Active Substance: NERATINIB
     Dosage: 120 MG (3 TABLETS), DAILY
     Route: 048
     Dates: start: 2020, end: 2020

REACTIONS (15)
  - Infection [Not Recovered/Not Resolved]
  - Off label use [Unknown]
  - Hypoaesthesia oral [Not Recovered/Not Resolved]
  - Taste disorder [Not Recovered/Not Resolved]
  - Dehydration [Not Recovered/Not Resolved]
  - Lethargy [Not Recovered/Not Resolved]
  - Dry mouth [Unknown]
  - Diarrhoea [Not Recovered/Not Resolved]
  - Abdominal distension [Not Recovered/Not Resolved]
  - Disease progression [Not Recovered/Not Resolved]
  - Constipation [Not Recovered/Not Resolved]
  - Malignant neoplasm of unknown primary site [Unknown]
  - Fatigue [Not Recovered/Not Resolved]
  - Decreased appetite [Not Recovered/Not Resolved]
  - Nausea [Not Recovered/Not Resolved]

NARRATIVE: CASE EVENT DATE: 2020
